FAERS Safety Report 20154986 (Version 1)
Quarter: 2021Q4

REPORT INFORMATION
  Report Type: Spontaneous
  Country: GB (occurrence: GB)
  Receive Date: 20211207
  Receipt Date: 20211207
  Transmission Date: 20220303
  Serious: Yes (Other)
  Sender: FDA-Public Use
  Company Number: GB-LUPIN PHARMACEUTICALS INC.-2021-23701

PATIENT
  Age: 36 Year
  Sex: Female

DRUGS (3)
  1. BUDESONIDE [Suspect]
     Active Substance: BUDESONIDE
     Indication: Autoimmune hepatitis
     Dosage: 3 MILLIGRAM, QD,ON ALTERNATIVE DAYS
     Route: 065
  2. BUDESONIDE [Suspect]
     Active Substance: BUDESONIDE
     Dosage: 6 MILLIGRAM, QD,ON ALTERNATIVE DAYS
     Route: 065
  3. AZATHIOPRINE [Suspect]
     Active Substance: AZATHIOPRINE
     Indication: Autoimmune hepatitis
     Dosage: 100 MILLIGRAM, QD
     Route: 065

REACTIONS (4)
  - Maternal exposure during pregnancy [Unknown]
  - Normal newborn [Unknown]
  - Gestational diabetes [Unknown]
  - Off label use [Unknown]
